FAERS Safety Report 6336793-6 (Version None)
Quarter: 2009Q3

REPORT INFORMATION
  Report Type: 
  Country: None (occurrence: None)
  Receive Date: 20090831
  Receipt Date: 20090831
  Transmission Date: 20100115
  Serious: No
  Sender: FDA-Public Use
  Company Number: None

PATIENT
  Age: 47 Year
  Sex: Female
  Weight: 63.5036 kg

DRUGS (2)
  1. LEVOTHYROXINE SODIUM [Suspect]
     Indication: HYPOTHYROIDISM
     Dosage: 25MCG DAILY PO
     Route: 048
     Dates: start: 20090421, end: 20090518
  2. LEVOTHYROXINE SODIUM [Suspect]
     Indication: HYPOTHYROIDISM
     Dosage: 50MCG DAILY PO
     Route: 048
     Dates: start: 20090519, end: 20090616

REACTIONS (15)
  - ACTIVITIES OF DAILY LIVING IMPAIRED [None]
  - ALOPECIA [None]
  - ANXIETY [None]
  - ARTHRALGIA [None]
  - CONDITION AGGRAVATED [None]
  - EMOTIONAL DISTRESS [None]
  - FATIGUE [None]
  - MUSCLE SPASMS [None]
  - NERVOUSNESS [None]
  - NO THERAPEUTIC RESPONSE [None]
  - PALPITATIONS [None]
  - POOR QUALITY SLEEP [None]
  - SOMNOLENCE [None]
  - SYNCOPE [None]
  - TREMOR [None]
